FAERS Safety Report 9448957 (Version 2)
Quarter: 2013Q4

REPORT INFORMATION
  Report Type: Spontaneous
  Country: US (occurrence: US)
  Receive Date: 20130808
  Receipt Date: 20131003
  Transmission Date: 20140711
  Serious: Yes (Other)
  Sender: FDA-Public Use
  Company Number: US-TEVA-423288USA

PATIENT
  Sex: Male

DRUGS (2)
  1. CLARAVIS [Suspect]
     Dosage: TOTAL DOSE WAS APPROX 14,400 MG
     Route: 048
     Dates: start: 20120905, end: 20130323
  2. CEFTIN [Concomitant]
     Indication: ACNE
     Dates: start: 201210

REACTIONS (4)
  - Colitis ulcerative [Recovering/Resolving]
  - Clostridium difficile infection [Recovering/Resolving]
  - Pancreatitis [Recovered/Resolved]
  - Gastrointestinal disorder [Recovering/Resolving]
